FAERS Safety Report 18699300 (Version 2)
Quarter: 2021Q1

REPORT INFORMATION
  Report Type: Spontaneous
  Country: CA (occurrence: CA)
  Receive Date: 20210105
  Receipt Date: 20210106
  Transmission Date: 20210419
  Serious: Yes (Other)
  Sender: FDA-Public Use
  Company Number: CA-HRARD-2020000942

PATIENT
  Sex: Male

DRUGS (3)
  1. METYRAPONE [Suspect]
     Active Substance: METYRAPONE
     Indication: EXPOSURE DURING PREGNANCY
     Dosage: TITRATED UP TO 250 MG TID
     Route: 064
  2. NIFEDIPINE XL [Concomitant]
     Active Substance: NIFEDIPINE
     Indication: EXPOSURE DURING PREGNANCY
     Route: 064
  3. ASPIRIN. [Concomitant]
     Active Substance: ASPIRIN
     Indication: EXPOSURE DURING PREGNANCY
     Route: 064

REACTIONS (2)
  - Glucocorticoid deficiency [Recovered/Resolved]
  - Maternal exposure during pregnancy [Recovered/Resolved]
